FAERS Safety Report 19236360 (Version 1)
Quarter: 2021Q2

REPORT INFORMATION
  Report Type: Spontaneous
  Country: US (occurrence: US)
  Receive Date: 20210510
  Receipt Date: 20210510
  Transmission Date: 20210717
  Serious: Yes (Hospitalization)
  Sender: FDA-Public Use
  Company Number: US-ROCHE-2820616

PATIENT
  Age: 36 Year
  Sex: Female

DRUGS (8)
  1. SENNA LAXATIVE [Concomitant]
     Active Substance: SENNOSIDES
  2. MAGNESIUM OXIDE. [Concomitant]
     Active Substance: MAGNESIUM OXIDE
  3. DEXAMETHASONE. [Concomitant]
     Active Substance: DEXAMETHASONE
  4. MORPHINE [Concomitant]
     Active Substance: MORPHINE
  5. GAVRETO [Suspect]
     Active Substance: PRALSETINIB
     Dosage: TAKE 4 CAPSULES (400 MG TOTAL) BY MOUTH DAILY, DISCONTINUED
     Route: 048
     Dates: start: 20210113, end: 20210422
  6. OMEPRAZOLE. [Concomitant]
     Active Substance: OMEPRAZOLE
  7. GAVRETO [Suspect]
     Active Substance: PRALSETINIB
     Indication: CHOLANGIOCARCINOMA
     Dosage: TAKE 4 CAPSULES (400 MG TOTAL) BY MOUTH DAILY, DISCONTINUED
     Route: 048
     Dates: start: 20201214, end: 20210423
  8. GAVRETO [Suspect]
     Active Substance: PRALSETINIB
     Dosage: TAKE 4 CAPSULES (400 MG TOTAL) BY MOUTH DAILY, DISCONTINUED
     Route: 048
     Dates: start: 20201215, end: 20210426

REACTIONS (3)
  - Off label use [Unknown]
  - Malignant pleural effusion [Unknown]
  - Disease progression [Not Recovered/Not Resolved]

NARRATIVE: CASE EVENT DATE: 20201215
